FAERS Safety Report 11876289 (Version 1)
Quarter: 2015Q4

REPORT INFORMATION
  Report Type: Spontaneous
  Country: JP (occurrence: JP)
  Receive Date: 20151229
  Receipt Date: 20151229
  Transmission Date: 20160305
  Serious: Yes (Other)
  Sender: FDA-Public Use
  Company Number: JP-TEVA-621539ISR

PATIENT
  Age: 60 Year
  Sex: Male
  Weight: 53.8 kg

DRUGS (6)
  1. INSULIN [Concomitant]
     Active Substance: INSULIN NOS
     Indication: INSULIN RESISTANCE SYNDROME
     Dosage: ABOUT 100U/DAY
     Route: 065
  2. METFORMIN [Concomitant]
     Active Substance: METFORMIN HYDROCHLORIDE
     Indication: INSULIN RESISTANCE SYNDROME
     Dosage: 500 MILLIGRAM DAILY;
     Route: 065
  3. RITUXIMAB [Concomitant]
     Active Substance: RITUXIMAB
     Indication: INSULIN RESISTANCE SYNDROME
     Route: 041
  4. PREDNISOLONE. [Suspect]
     Active Substance: PREDNISOLONE
     Indication: INSULIN RESISTANCE SYNDROME
     Dosage: 20MG
     Route: 048
  5. CICLOSPORIN [Suspect]
     Active Substance: CYCLOSPORINE
     Indication: INSULIN RESISTANCE SYNDROME
     Dosage: 100 MG/DAY, INCREASED TO 150 MG/DAY
     Route: 065
  6. INSULIN [Concomitant]
     Active Substance: INSULIN NOS
     Dosage: 9.0 MU/KG/MIN
     Route: 041

REACTIONS (3)
  - Hyperglycaemia [Recovered/Resolved]
  - Condition aggravated [Recovered/Resolved]
  - Renal impairment [Unknown]
